FAERS Safety Report 12848896 (Version 4)
Quarter: 2016Q4

REPORT INFORMATION
  Report Type: Spontaneous
  Country: US (occurrence: US)
  Receive Date: 20161014
  Receipt Date: 20161116
  Transmission Date: 20170207
  Serious: Yes (Other)
  Sender: FDA-Public Use
  Company Number: US-PFIZER INC-2016480337

PATIENT
  Age: 62 Year
  Sex: Female
  Weight: 66 kg

DRUGS (3)
  1. LYRICA [Suspect]
     Active Substance: PREGABALIN
     Indication: NERVE INJURY
     Dosage: 50 MG, 3X/DAY
     Route: 048
  2. LYRICA [Suspect]
     Active Substance: PREGABALIN
     Dosage: 50 MG, 3X/DAY
     Route: 048
     Dates: start: 2016
  3. LYRICA [Suspect]
     Active Substance: PREGABALIN
     Dosage: 150 MG, 3X/DAY
     Route: 048
     Dates: start: 20160604, end: 2016

REACTIONS (30)
  - Incorrect drug dosage form administered [Unknown]
  - Mental impairment [Recovered/Resolved with Sequelae]
  - Drug dependence [Unknown]
  - Tremor [Unknown]
  - Paranoia [Not Recovered/Not Resolved]
  - Feeling abnormal [Unknown]
  - Fear [Not Recovered/Not Resolved]
  - Crying [Not Recovered/Not Resolved]
  - Epistaxis [Not Recovered/Not Resolved]
  - Heart rate increased [Unknown]
  - Insomnia [Unknown]
  - Scratch [Recovered/Resolved]
  - Product dosage form confusion [Unknown]
  - Loss of consciousness [Recovered/Resolved with Sequelae]
  - Suicidal ideation [Unknown]
  - Hypertension [Not Recovered/Not Resolved]
  - Dysarthria [Unknown]
  - Drug withdrawal syndrome [Recovered/Resolved]
  - Palpitations [Unknown]
  - Weight decreased [Recovering/Resolving]
  - Amnesia [Recovered/Resolved with Sequelae]
  - Confusional state [Unknown]
  - Nervousness [Not Recovered/Not Resolved]
  - Onychoclasis [Recovered/Resolved]
  - Malaise [Unknown]
  - Pain [Unknown]
  - Drug dispensing error [Unknown]
  - Medication monitoring error [Unknown]
  - Decreased appetite [Unknown]
  - Depression [Unknown]

NARRATIVE: CASE EVENT DATE: 201606
